FAERS Safety Report 25631069 (Version 1)
Quarter: 2025Q3

REPORT INFORMATION
  Report Type: Report from Study
  Country: US (occurrence: US)
  Receive Date: 20250801
  Receipt Date: 20250801
  Transmission Date: 20251020
  Serious: Yes (Other)
  Sender: ALEXION PHARMACEUTICALS
  Company Number: US-AstraZeneca-CH-00920930A

PATIENT
  Sex: Female

DRUGS (2)
  1. ACALABRUTINIB [Suspect]
     Active Substance: ACALABRUTINIB
     Indication: Chronic lymphocytic leukaemia
     Dosage: 100 MILLIGRAM, QD
     Dates: start: 202403
  2. BRUKINSA [Concomitant]
     Active Substance: ZANUBRUTINIB
     Route: 065

REACTIONS (3)
  - Depression [Unknown]
  - Hallucination [Unknown]
  - Headache [Unknown]
